FAERS Safety Report 4762736-2 (Version None)
Quarter: 2005Q3

REPORT INFORMATION
  Report Type: 
  Country: None (occurrence: None)
  Receive Date: 20050907
  Receipt Date: 20050228
  Transmission Date: 20060218
  Serious: Yes (Death)
  Sender: FDA-Public Use
  Company Number: JP-ROCHE-397349

PATIENT
  Age: 2 Year
  Sex: Male

DRUGS (4)
  1. TAMIFLU [Suspect]
     Indication: INFLUENZA
     Route: 048
     Dates: start: 20050224, end: 20050224
  2. TAMIFLU [Suspect]
     Route: 048
     Dates: start: 20050225, end: 20050225
  3. TAMIFLU [Suspect]
     Route: 048
     Dates: start: 20050226, end: 20050227
  4. PHENOBAL [Concomitant]
     Route: 048
     Dates: start: 20030408

REACTIONS (35)
  - AFFECTIVE DISORDER [None]
  - BLOOD CREATINE PHOSPHOKINASE INCREASED [None]
  - BLOOD DISORDER [None]
  - BLOOD ELECTROLYTES ABNORMAL [None]
  - BLOOD PRESSURE IMMEASURABLE [None]
  - BLOOD UREA ABNORMAL [None]
  - BRADYCARDIA [None]
  - BRAIN OEDEMA [None]
  - BRAIN STEM SYNDROME [None]
  - CARDIAC FAILURE ACUTE [None]
  - CARDIO-RESPIRATORY ARREST [None]
  - CEREBRAL ATROPHY [None]
  - COMA [None]
  - DRUG EFFECT DECREASED [None]
  - FLUID INTAKE REDUCED [None]
  - HYPOALBUMINAEMIA [None]
  - HYPOTHERMIA [None]
  - INFLAMMATION [None]
  - INTRACRANIAL PRESSURE INCREASED [None]
  - INTRAVENTRICULAR HAEMORRHAGE [None]
  - LIVER DISORDER [None]
  - METABOLIC ACIDOSIS [None]
  - MYDRIASIS [None]
  - NERVOUS SYSTEM DISORDER [None]
  - OXYGEN SATURATION DECREASED [None]
  - PALLOR [None]
  - PO2 DECREASED [None]
  - PULMONARY OEDEMA [None]
  - RALES [None]
  - RESPIRATORY DISORDER [None]
  - SHOCK [None]
  - SOMNOLENCE [None]
  - STRIDOR [None]
  - VOMITING [None]
  - WHITE BLOOD CELL COUNT INCREASED [None]
